FAERS Safety Report 21713995 (Version 1)
Quarter: 2022Q4

REPORT INFORMATION
  Report Type: Spontaneous
  Country: US (occurrence: None)
  Receive Date: 20221209
  Receipt Date: 20221209
  Transmission Date: 20230112
  Serious: Yes (Hospitalization)
  Sender: FDA-Public Use
  Company Number: None

PATIENT
  Age: 65 Year
  Sex: Male
  Weight: 107.5 kg

DRUGS (2)
  1. DAPTOMYCIN [Suspect]
     Active Substance: DAPTOMYCIN
     Indication: Infection
     Dosage: FREQUENCY : DAILY;?
     Route: 042
     Dates: start: 20220719, end: 20220720
  2. AMOXICILLIN\CLAVULANATE POTASSIUM [Suspect]
     Active Substance: AMOXICILLIN\CLAVULANATE POTASSIUM
     Dosage: OTHER QUANTITY : 875/125MG;?FREQUENCY : TWICE A DAY;?
     Route: 048
     Dates: start: 20220713, end: 20220804

REACTIONS (4)
  - Throat tightness [None]
  - Thrombocytopenia [None]
  - Rash [None]
  - Dysphagia [None]

NARRATIVE: CASE EVENT DATE: 20220720
